FAERS Safety Report 18279815 (Version 1)
Quarter: 2020Q3

REPORT INFORMATION
  Report Type: Spontaneous
  Country: GB (occurrence: GB)
  Receive Date: 20200917
  Receipt Date: 20200917
  Transmission Date: 20201103
  Serious: Yes (Death)
  Sender: FDA-Public Use
  Company Number: GB-JNJFOC-20200919981

PATIENT
  Age: 73 Year
  Sex: Male
  Weight: 75.8 kg

DRUGS (6)
  1. RIVAROXABAN [Suspect]
     Active Substance: RIVAROXABAN
     Indication: PULMONARY EMBOLISM
     Dosage: 30 MG, QD
     Route: 048
     Dates: start: 20200713, end: 20200714
  2. ALTEPLASE. [Suspect]
     Active Substance: ALTEPLASE
     Indication: PULMONARY EMBOLISM
     Dosage: UNK
     Route: 042
     Dates: start: 20200710, end: 20200710
  3. TINZAPARIN [Suspect]
     Active Substance: TINZAPARIN
     Indication: PULMONARY EMBOLISM
     Dosage: EACH EVENING (CORRECT DOSE FOR WEIGHT AND RENAL FUNCTION)
     Route: 058
     Dates: start: 20200711, end: 20200714
  4. OMEPRAZOLE. [Concomitant]
     Active Substance: OMEPRAZOLE
     Indication: PROPHYLAXIS AGAINST GASTROINTESTINAL ULCER
     Dosage: UNK
  5. NAPROXEN. [Concomitant]
     Active Substance: NAPROXEN
     Dosage: UNK
  6. HEPARIN [Suspect]
     Active Substance: HEPARIN SODIUM
     Indication: PULMONARY EMBOLISM
     Dosage: 5000 IU, UNK
     Route: 042
     Dates: start: 20200710, end: 20200710

REACTIONS (5)
  - Abdominal sepsis [Fatal]
  - Acute kidney injury [Fatal]
  - Malaise [Fatal]
  - Intra-abdominal haemorrhage [Fatal]
  - Contraindicated product administered [Unknown]

NARRATIVE: CASE EVENT DATE: 20200713
